FAERS Safety Report 7766943-6 (Version None)
Quarter: 2011Q3

REPORT INFORMATION
  Report Type: 
  Country: None (occurrence: None)
  Receive Date: 20110922
  Receipt Date: 20110915
  Transmission Date: 20111222
  Serious: Yes (Other)
  Sender: FDA-Public Use
  Company Number: FR-ROXANE LABORATORIES, INC.-2011-RO-01302RO

PATIENT
  Age: 48 Year
  Sex: Female

DRUGS (6)
  1. METHADONE HCL [Suspect]
     Dosage: 65 MG
  2. LAMIVUDINE [Suspect]
  3. NELFINAVIR MESYLATE [Suspect]
  4. LORAZEPAM [Suspect]
  5. ZIDOVUDINE [Suspect]
  6. FLUOXETINE [Suspect]

REACTIONS (1)
  - ELECTROCARDIOGRAM QT PROLONGED [None]
